FAERS Safety Report 24960989 (Version 1)
Quarter: 2025Q1

REPORT INFORMATION
  Report Type: Report from Study
  Country: US (occurrence: US)
  Receive Date: 20250212
  Receipt Date: 20250212
  Transmission Date: 20250409
  Serious: Yes (Other)
  Sender: ALEXION PHARMACEUTICALS
  Company Number: US-AstraZeneca-CH-00801337A

PATIENT

DRUGS (1)
  1. DAPAGLIFLOZIN [Suspect]
     Active Substance: DAPAGLIFLOZIN

REACTIONS (9)
  - Myocardial infarction [Unknown]
  - Cerebrovascular accident [Unknown]
  - Thrombosis [Unknown]
  - Hemiplegia [Unknown]
  - Speech disorder [Unknown]
  - Cardiac failure [Unknown]
  - Movement disorder [Unknown]
  - Limb discomfort [Unknown]
  - Fall [Unknown]
